FAERS Safety Report 9376039 (Version 1)
Quarter: 2013Q2

REPORT INFORMATION
  Report Type: Spontaneous
  Country: US (occurrence: None)
  Receive Date: 20130628
  Receipt Date: 20130628
  Transmission Date: 20140414
  Serious: Yes (Other)
  Sender: FDA-Public Use
  Company Number: None

PATIENT
  Age: 69 Year
  Sex: Female
  Weight: 84.2 kg

DRUGS (1)
  1. ALBUMIN [Suspect]
     Dosage: 250ML OT IV
     Route: 042
     Dates: start: 20130624, end: 20130625

REACTIONS (1)
  - Hypersensitivity [None]
